FAERS Safety Report 17862114 (Version 3)
Quarter: 2021Q4

REPORT INFORMATION
  Report Type: Spontaneous
  Country: JP (occurrence: JP)
  Receive Date: 20200604
  Receipt Date: 20211221
  Transmission Date: 20220303
  Serious: Yes (Other)
  Sender: FDA-Public Use
  Company Number: JP-BRISTOL-MYERS SQUIBB COMPANY-BMS-2019-002197

PATIENT
  Age: 67 Year
  Sex: Female
  Weight: 39.7 kg

DRUGS (2)
  1. OPDIVO [Suspect]
     Active Substance: NIVOLUMAB
     Indication: Head and neck cancer
     Dosage: 120 MILLIGRAM, Q2WK
     Route: 041
     Dates: start: 20170926, end: 20171024
  2. OPDIVO [Suspect]
     Active Substance: NIVOLUMAB
     Dosage: 110 MILLIGRAM, Q2WK
     Route: 041
     Dates: start: 20171107, end: 20180718

REACTIONS (4)
  - Diabetes mellitus [Unknown]
  - Hypothyroidism [Recovered/Resolved]
  - Thyroiditis [Not Recovered/Not Resolved]
  - Pruritus [Not Recovered/Not Resolved]

NARRATIVE: CASE EVENT DATE: 20171024
